FAERS Safety Report 25169380 (Version 2)
Quarter: 2025Q2

REPORT INFORMATION
  Report Type: Spontaneous
  Country: BE (occurrence: BE)
  Receive Date: 20250407
  Receipt Date: 20250414
  Transmission Date: 20250717
  Serious: Yes (Death, Hospitalization, Other)
  Sender: PFIZER
  Company Number: None

PATIENT
  Age: 71 Year
  Sex: Male

DRUGS (12)
  1. CYTARABINE [Suspect]
     Active Substance: CYTARABINE
     Indication: Acute myeloid leukaemia
  2. CYTARABINE [Suspect]
     Active Substance: CYTARABINE
  3. DAUNORUBICIN [Concomitant]
     Active Substance: DAUNORUBICIN
     Indication: Acute myeloid leukaemia
  4. ASPIRIN [Concomitant]
     Active Substance: ASPIRIN
  5. CELIPROLOL HYDROCHLORIDE [Concomitant]
     Active Substance: CELIPROLOL HYDROCHLORIDE
  6. CETIRIZINE HYDROCHLORIDE [Concomitant]
     Active Substance: CETIRIZINE HYDROCHLORIDE
  7. DIPYRIDAMOLE [Concomitant]
     Active Substance: DIPYRIDAMOLE
  8. FENOFIBRATE [Concomitant]
     Active Substance: FENOFIBRATE
  9. LISINOPRIL [Concomitant]
     Active Substance: LISINOPRIL
  10. MOLSIDOMINE [Concomitant]
     Active Substance: MOLSIDOMINE
  11. NISOLDIPINE [Concomitant]
     Active Substance: NISOLDIPINE
  12. OMEPRAZOLE [Concomitant]
     Active Substance: OMEPRAZOLE

REACTIONS (9)
  - Bone marrow failure [Fatal]
  - Clostridium difficile infection [Fatal]
  - Febrile neutropenia [Fatal]
  - Dermatitis exfoliative generalised [Fatal]
  - Acute myeloid leukaemia recurrent [Fatal]
  - Staphylococcal sepsis [Fatal]
  - Diarrhoea [Fatal]
  - Ear infection [Fatal]
  - Mucosal inflammation [Fatal]
